FAERS Safety Report 18957079 (Version 1)
Quarter: 2021Q1

REPORT INFORMATION
  Report Type: Spontaneous
  Country: US (occurrence: US)
  Receive Date: 20210301
  Receipt Date: 20210301
  Transmission Date: 20210420
  Serious: Yes (Hospitalization)
  Sender: FDA-Public Use
  Company Number: None

PATIENT
  Age: 84 Year
  Sex: Male

DRUGS (6)
  1. IRON [Concomitant]
     Active Substance: IRON
  2. FOSINOPRIL [Concomitant]
     Active Substance: FOSINOPRIL
  3. ALLOPURINOL. [Concomitant]
     Active Substance: ALLOPURINOL
  4. ISOSORBIDE MONONITRATE. [Concomitant]
     Active Substance: ISOSORBIDE MONONITRATE
  5. PLAVIX [Concomitant]
     Active Substance: CLOPIDOGREL BISULFATE
  6. BAMLANIVIMAB. [Suspect]
     Active Substance: BAMLANIVIMAB
     Dosage: ?          OTHER FREQUENCY:ONCE;?
     Route: 042
     Dates: start: 20210209, end: 20210209

REACTIONS (1)
  - Acute myocardial infarction [None]

NARRATIVE: CASE EVENT DATE: 20210209
